FAERS Safety Report 25209186 (Version 3)
Quarter: 2025Q2

REPORT INFORMATION
  Report Type: Spontaneous
  Country: US (occurrence: US)
  Receive Date: 20250417
  Receipt Date: 20250630
  Transmission Date: 20250717
  Serious: Yes (Hospitalization, Other)
  Sender: PFIZER
  Company Number: US-MLMSERVICE-20250331-PI462084-00123-1

PATIENT
  Age: 43 Year
  Sex: Female

DRUGS (14)
  1. DOCETAXEL [Interacting]
     Active Substance: DOCETAXEL
     Indication: HER2 positive breast cancer
     Dosage: 75 MG/M2, EVERY 3 WEEKS
  2. DOCETAXEL [Interacting]
     Active Substance: DOCETAXEL
     Indication: Breast cancer stage III
  3. CARBOPLATIN [Interacting]
     Active Substance: CARBOPLATIN
     Indication: HER2 positive breast cancer
     Dosage: UNK, EVERY 3 WEEKS (AREA UNDER THE CURVE (AUC) OF 6)
  4. CARBOPLATIN [Interacting]
     Active Substance: CARBOPLATIN
     Indication: Breast cancer stage III
  5. TRASTUZUMAB [Interacting]
     Active Substance: TRASTUZUMAB
     Indication: HER2 positive breast cancer
     Dosage: 8 MG/KG, EVERY 3 WEEKS (LOADING DOSE)
  6. TRASTUZUMAB [Interacting]
     Active Substance: TRASTUZUMAB
     Indication: Breast cancer stage III
     Dosage: 6 MG/KG, EVERY 3 WEEKS
  7. PERTUZUMAB [Interacting]
     Active Substance: PERTUZUMAB
     Indication: HER2 positive breast cancer
     Dosage: 840 MG/KG, EVERY 3 WEEKS (LOADING DOSE)
  8. PERTUZUMAB [Interacting]
     Active Substance: PERTUZUMAB
     Indication: Breast cancer stage III
     Dosage: 420 MG/KG, EVERY 3 WEEKS
  9. APREPITANT [Concomitant]
     Active Substance: APREPITANT
     Indication: Premedication
  10. DEXAMETHASONE [Concomitant]
     Active Substance: DEXAMETHASONE
     Indication: Premedication
  11. PEGFILGRASTIM [Concomitant]
     Active Substance: PEGFILGRASTIM
  12. FAMOTIDINE [Concomitant]
     Active Substance: FAMOTIDINE
     Indication: Premedication
  13. DIPHENHYDRAMINE [Concomitant]
     Active Substance: DIPHENHYDRAMINE
     Indication: Premedication
  14. PALONOSETRON [Concomitant]
     Active Substance: PALONOSETRON
     Indication: Premedication

REACTIONS (3)
  - Cystitis haemorrhagic [Recovered/Resolved]
  - Drug interaction [Recovered/Resolved]
  - Off label use [Unknown]
